FAERS Safety Report 19834822 (Version 1)
Quarter: 2021Q3

REPORT INFORMATION
  Report Type: Spontaneous
  Country: IR (occurrence: IR)
  Receive Date: 20210915
  Receipt Date: 20210915
  Transmission Date: 20211014
  Serious: Yes (Other)
  Sender: FDA-Public Use
  Company Number: IR-ABBVIE-21K-080-4077737-00

PATIENT
  Age: 48 Year
  Sex: Female

DRUGS (1)
  1. DEPAKINE [Suspect]
     Active Substance: VALPROATE SODIUM
     Indication: SEIZURE
     Route: 048
     Dates: start: 20150509

REACTIONS (7)
  - Narcolepsy [Unknown]
  - Fatigue [Unknown]
  - Skin disorder [Not Recovered/Not Resolved]
  - Paraesthesia oral [Unknown]
  - Drug ineffective [Unknown]
  - Dry mouth [Unknown]
  - Amnesia [Not Recovered/Not Resolved]

NARRATIVE: CASE EVENT DATE: 2015
